FAERS Safety Report 16741518 (Version 2)
Quarter: 2019Q3

REPORT INFORMATION
  Report Type: Spontaneous
  Country: ES (occurrence: ES)
  Receive Date: 20190826
  Receipt Date: 20190827
  Transmission Date: 20191005
  Serious: Yes (Hospitalization)
  Sender: FDA-Public Use
  Company Number: ES-ABBVIE-19K-144-2899336-00

PATIENT
  Age: 67 Year
  Sex: Female

DRUGS (1)
  1. DUODOPA [Suspect]
     Active Substance: CARBIDOPA\LEVODOPA
     Indication: PRODUCT USED FOR UNKNOWN INDICATION
     Dosage: 1.6 ML/H?LIQUID?INFUSION
     Route: 050
     Dates: start: 2015, end: 20190822

REACTIONS (2)
  - Stoma complication [Unknown]
  - Stoma site infection [Unknown]

NARRATIVE: CASE EVENT DATE: 201907
